FAERS Safety Report 14434450 (Version 3)
Quarter: 2022Q1

REPORT INFORMATION
  Report Type: Report from Study
  Country: US (occurrence: US)
  Receive Date: 20180124
  Receipt Date: 20220127
  Transmission Date: 20220423
  Serious: Yes (Hospitalization, Other)
  Sender: FDA-Public Use
  Company Number: US-BAUSCH-BL-2018-001463

PATIENT
  Age: 69 Year
  Sex: Male
  Weight: 81.720 kg

DRUGS (13)
  1. XIFAXAN [Suspect]
     Active Substance: RIFAXIMIN
     Indication: Hepatic failure
     Dosage: STARTED FOUR YEARS AGO
     Route: 048
  2. XIFAXAN [Suspect]
     Active Substance: RIFAXIMIN
     Dosage: RESTARTED AND YET NOT RAN OUT
     Route: 048
  3. FLEXERIL [Concomitant]
     Active Substance: CYCLOBENZAPRINE HYDROCHLORIDE
     Indication: Product used for unknown indication
     Dosage: TAKE 10MG BY MOUTH AT BEDTIME
     Route: 048
  4. IRON [Concomitant]
     Active Substance: IRON
     Indication: Product used for unknown indication
     Dosage: TAKE 325 MG BY MOUTH AT DAILY
     Route: 048
  5. FOLVITE [Concomitant]
     Active Substance: FOLIC ACID
     Indication: Product used for unknown indication
     Dosage: TAKE 800 MCG BY MOUTH AT DAILY
     Route: 048
  6. IBUPROFEN [Concomitant]
     Active Substance: IBUPROFEN
     Indication: Product used for unknown indication
     Dosage: TAKE 200 MG BY MOUTH EVERY 6HOURS AS NEEDED
     Route: 048
  7. CHRONULAC [Concomitant]
     Active Substance: LACTULOSE
     Indication: Product used for unknown indication
     Dosage: TAKE 30ML BY MOUTH 3 TIMES A DAY % (5REFILLS)
     Route: 048
  8. MULTIVITAMIN IRON,FOLIC ACID [Concomitant]
     Indication: Product used for unknown indication
     Route: 048
  9. PRILOSEC [Concomitant]
     Active Substance: OMEPRAZOLE MAGNESIUM
     Indication: Product used for unknown indication
     Dosage: TAKE 1 CAPSULE BY MOUTH AT DAILY BEFORE A MEAL (3REFILLS)
     Route: 048
  10. K-DUR [Concomitant]
     Active Substance: POTASSIUM CHLORIDE
     Indication: Product used for unknown indication
     Dosage: TAKE 20MEQ BY MOUTH AT DAILY
     Route: 048
  11. ALDACTONE [Concomitant]
     Active Substance: SPIRONOLACTONE
     Indication: Product used for unknown indication
     Dosage: TAKE 1 TABLET BY MOUTH AT DAILY 90 TAB 3 REFILLS
     Route: 048
  12. VITAMIN E [Concomitant]
     Active Substance: .ALPHA.-TOCOPHEROL
     Indication: Product used for unknown indication
     Dosage: TAKE 400 UNIT BY MOUTH AT DAILY
     Route: 048
  13. LASIX [Concomitant]
     Active Substance: FUROSEMIDE
     Indication: Product used for unknown indication
     Dosage: 14 DAYS

REACTIONS (21)
  - Loss of consciousness [Unknown]
  - Gastrointestinal disorder [Unknown]
  - Prostate cancer [Unknown]
  - Neurotoxicity [Unknown]
  - Portal shunt procedure [Unknown]
  - Internal haemorrhage [Unknown]
  - Constipation [Unknown]
  - Ammonia increased [Unknown]
  - Feeling abnormal [Unknown]
  - Cerebral disorder [Unknown]
  - Thermal burn [Recovered/Resolved]
  - Confusional state [Unknown]
  - Bronchitis [Unknown]
  - Pain [Unknown]
  - Muscle spasms [Not Recovered/Not Resolved]
  - Insomnia [Unknown]
  - Nausea [Unknown]
  - Abdominal distension [Unknown]
  - Pruritus [Unknown]
  - Therapy interrupted [Unknown]
  - Product distribution issue [Not Recovered/Not Resolved]
